FAERS Safety Report 16982812 (Version 1)
Quarter: 2019Q4

REPORT INFORMATION
  Report Type: Spontaneous
  Country: JP (occurrence: JP)
  Receive Date: 20191101
  Receipt Date: 20191101
  Transmission Date: 20200122
  Serious: Yes (Hospitalization, Other)
  Sender: FDA-Public Use
  Company Number: JP-GLAXOSMITHKLINE-JP2019JPN197691

PATIENT
  Age: 83 Year
  Sex: Female
  Weight: 55 kg

DRUGS (9)
  1. AMENALIEF TABLET [Concomitant]
     Dosage: UNK
     Route: 048
     Dates: start: 20190806, end: 20190811
  2. RAPIVIR [Suspect]
     Active Substance: VALACYCLOVIR HYDROCHLORIDE
     Indication: HERPES ZOSTER
     Dosage: 1000 MG, TID
     Route: 048
     Dates: start: 20190802, end: 20190805
  3. TERPERAN TABLETS (METOCLOPRAMIDE) [Concomitant]
     Dosage: UNK
     Dates: end: 20190805
  4. BISOPROLOL FUMARATE TABLET [Concomitant]
     Dosage: UNK
     Dates: end: 20190805
  5. PRORANON OPHTHALMIC SOLUTION [Concomitant]
  6. AMVALO [Concomitant]
     Dosage: UNK
     Dates: end: 20190805
  7. ATORVASTATIN CALCIUM TABLET [Concomitant]
     Active Substance: ATORVASTATIN CALCIUM
     Dosage: UNK
     Dates: end: 20190805
  8. TEARBALANCE OPHTHALMIC SOLUTION [Concomitant]
  9. TRICHLORMETHIAZIDE [Concomitant]
     Active Substance: TRICHLORMETHIAZIDE
     Dosage: UNK
     Dates: end: 20190805

REACTIONS (3)
  - Nausea [Unknown]
  - Balance disorder [Unknown]
  - Nephropathy toxic [Recovered/Resolved]

NARRATIVE: CASE EVENT DATE: 20190805
